FAERS Safety Report 9085974 (Version 1)
Quarter: 2013Q1

REPORT INFORMATION
  Report Type: Report from Study
  Country: US (occurrence: US)
  Receive Date: 20130131
  Receipt Date: 20130131
  Transmission Date: 20140127
  Serious: No
  Sender: FDA-Public Use
  Company Number: US-ABBOTT-12P-163-0991022-00

PATIENT
  Sex: Female
  Weight: 50.85 kg

DRUGS (7)
  1. HUMIRA [Suspect]
     Indication: CROHN^S DISEASE
     Dates: start: 2008, end: 201206
  2. CIMZIA [Concomitant]
     Indication: CROHN^S DISEASE
     Dates: start: 20120803, end: 20120817
  3. PLAVIX [Concomitant]
     Indication: THROMBOSIS PROPHYLAXIS
  4. METOPROLOL [Concomitant]
     Indication: HYPERTENSION
  5. VITAMIN B 12 [Concomitant]
     Indication: VITAMIN B COMPLEX DEFICIENCY
  6. VITAMIN D [Concomitant]
     Indication: VITAMIN D DEFICIENCY
  7. LISINOPRIL [Concomitant]
     Indication: HYPERTENSION

REACTIONS (2)
  - Crohn^s disease [Recovered/Resolved]
  - Drug ineffective [Not Recovered/Not Resolved]
